FAERS Safety Report 4451094-9 (Version None)
Quarter: 2004Q3

REPORT INFORMATION
  Report Type: 
  Country: None (occurrence: None)
  Receive Date: 20040916
  Receipt Date: 20040910
  Transmission Date: 20050211
  Serious: Yes (Hospitalization)
  Sender: FDA-Public Use
  Company Number: DE-ROCHE-380176

PATIENT
  Age: 69 Year
  Sex: Female

DRUGS (10)
  1. DACLIZUMAB [Suspect]
     Route: 042
     Dates: start: 20040627, end: 20040727
  2. DACLIZUMAB [Suspect]
     Route: 042
     Dates: start: 20040810
  3. MYCOPHENOLATE MOFETIL [Suspect]
     Route: 048
     Dates: start: 20040727, end: 20040909
  4. MYCOPHENOLATE MOFETIL [Suspect]
     Route: 048
     Dates: start: 20040910
  5. SIROLIMUS [Suspect]
     Route: 048
     Dates: start: 20040727, end: 20040730
  6. SIROLIMUS [Suspect]
     Route: 048
     Dates: start: 20040731, end: 20040901
  7. SIROLIMUS [Suspect]
     Route: 048
     Dates: start: 20040902
  8. SOLU-DECORTIN-H [Suspect]
     Route: 042
     Dates: start: 20040727, end: 20040727
  9. PREDNISONE [Suspect]
     Route: 048
     Dates: start: 20040728, end: 20040810
  10. PREDNISONE [Suspect]
     Route: 048
     Dates: start: 20040811

REACTIONS (1)
  - HERPES ZOSTER [None]
